FAERS Safety Report 14999525 (Version 1)
Quarter: 2018Q2

REPORT INFORMATION
  Report Type: Spontaneous
  Country: SG (occurrence: SG)
  Receive Date: 20180612
  Receipt Date: 20180612
  Transmission Date: 20180711
  Serious: Yes (Other)
  Sender: FDA-Public Use
  Company Number: SG-ACCORD-062374

PATIENT
  Age: 33 Year
  Sex: Male

DRUGS (3)
  1. CISPLATIN. [Suspect]
     Active Substance: CISPLATIN
     Indication: TERATOMA
     Dosage: 2 CYCLE
  2. ETOPOSIDE. [Suspect]
     Active Substance: ETOPOSIDE
     Indication: TERATOMA
  3. IFOSFAMIDE. [Suspect]
     Active Substance: IFOSFAMIDE
     Indication: TERATOMA

REACTIONS (3)
  - Anaemia [Unknown]
  - Bone marrow failure [Unknown]
  - Neutropenic sepsis [Unknown]
